FAERS Safety Report 4609827-4 (Version None)
Quarter: 2005Q1

REPORT INFORMATION
  Report Type: 
  Country: None (occurrence: None)
  Receive Date: 20050316
  Receipt Date: 20040812
  Transmission Date: 20050727
  Serious: Yes (Hospitalization)
  Sender: FDA-Public Use
  Company Number: 200416104US

PATIENT
  Sex: Female

DRUGS (7)
  1. AMARYL [Suspect]
     Route: 048
     Dates: start: 20040101
  2. REMINYL [Suspect]
     Indication: DEMENTIA ALZHEIMER'S TYPE
     Route: 048
     Dates: start: 20040101, end: 20040101
  3. MEMANTINE [Concomitant]
     Indication: DEMENTIA ALZHEIMER'S TYPE
     Dosage: DOSE: NOT PROVIDED
  4. VERAPAMIL [Concomitant]
     Dosage: DOSE: NOT PROVIDED
  5. HYDROCHLOROTHIAZIDE [Concomitant]
     Indication: OSTEOARTHRITIS
     Dosage: DOSE: NOT PROVIDED
  6. ENTERIC COATED ACETYLSALICYLIC ACID [Concomitant]
     Dosage: DOSE: NOT PROVIDED
  7. VIOXX [Concomitant]
     Dosage: DOSE: NOT PROVIDED

REACTIONS (6)
  - COMA [None]
  - DEPRESSED LEVEL OF CONSCIOUSNESS [None]
  - HYPOGLYCAEMIA [None]
  - LETHARGY [None]
  - MEDICATION ERROR [None]
  - URINARY TRACT INFECTION [None]
